FAERS Safety Report 8091319-4 (Version None)
Quarter: 2012Q1

REPORT INFORMATION
  Report Type: 
  Country: None (occurrence: None)
  Receive Date: 20120129
  Receipt Date: 20110929
  Transmission Date: 20120608
  Serious: No
  Sender: FDA-Public Use
  Company Number: US-ABBOTT-11P-163-0859768-00

PATIENT
  Age: 56 Year
  Sex: Female

DRUGS (7)
  1. VIT E [Concomitant]
     Indication: PRODUCT USED FOR UNKNOWN INDICATION
  2. HUMIRA [Suspect]
     Indication: PSORIASIS
     Dates: start: 20110701
  3. SYNTHROID [Concomitant]
     Indication: HYPOTHYROIDISM
  4. RECLAST [Concomitant]
     Indication: OSTEOPOROSIS
  5. WOMENS ULTRA MEGA [Concomitant]
     Indication: PRODUCT USED FOR UNKNOWN INDICATION
  6. CITRACAL [Concomitant]
     Indication: PRODUCT USED FOR UNKNOWN INDICATION
  7. IMITREX [Concomitant]
     Indication: MIGRAINE
     Dosage: MAYBE TWICE MONTHLY

REACTIONS (1)
  - INJECTION SITE HAEMORRHAGE [None]
